FAERS Safety Report 11920395 (Version 3)
Quarter: 2016Q2

REPORT INFORMATION
  Report Type: Spontaneous
  Country: US (occurrence: US)
  Receive Date: 20160115
  Receipt Date: 20160524
  Transmission Date: 20160815
  Serious: Yes (Other)
  Sender: FDA-Public Use
  Company Number: US-TEVA-625477USA

PATIENT
  Sex: Female

DRUGS (4)
  1. ZECUITY [Suspect]
     Active Substance: SUMATRIPTAN SUCCINATE
     Dosage: 6.5 MG/4 HOURS
     Route: 062
     Dates: start: 201511, end: 201511
  2. SINGULAIR [Concomitant]
     Active Substance: MONTELUKAST SODIUM
  3. ZECUITY [Suspect]
     Active Substance: SUMATRIPTAN SUCCINATE
     Dosage: 6.5 MG/4 HOURS
     Route: 062
     Dates: start: 201510, end: 201510
  4. DYMISTA [Concomitant]
     Active Substance: AZELASTINE HYDROCHLORIDE\FLUTICASONE PROPIONATE

REACTIONS (6)
  - Application site erythema [Recovered/Resolved]
  - Application site exfoliation [Recovering/Resolving]
  - Application site necrosis [Recovered/Resolved]
  - Application site discolouration [Recovered/Resolved]
  - Application site burn [Recovered/Resolved]
  - Device battery issue [Unknown]

NARRATIVE: CASE EVENT DATE: 2015
